FAERS Safety Report 16164664 (Version 2)
Quarter: 2019Q2

REPORT INFORMATION
  Report Type: Spontaneous
  Country: GB (occurrence: GB)
  Receive Date: 20190405
  Receipt Date: 20190415
  Transmission Date: 20190711
  Serious: Yes (Death, Life-Threatening)
  Sender: FDA-Public Use
  Company Number: GB-MYLANLABS-2019M1032329

PATIENT
  Sex: Male
  Weight: 74.6 kg

DRUGS (1)
  1. CLOZARIL [Suspect]
     Active Substance: CLOZAPINE
     Indication: SCHIZOPHRENIA
     Dosage: 250 MILLIGRAM, PM
     Route: 048
     Dates: start: 20070202

REACTIONS (2)
  - Biliary sepsis [Fatal]
  - Pancreatic carcinoma [Fatal]
